FAERS Safety Report 11540658 (Version 2)
Quarter: 2016Q3

REPORT INFORMATION
  Report Type: Spontaneous
  Country: US (occurrence: US)
  Receive Date: 20150923
  Receipt Date: 20160809
  Transmission Date: 20161109
  Serious: No
  Sender: FDA-Public Use
  Company Number: US-BEH-2015051831

PATIENT
  Sex: Female
  Weight: 50 kg

DRUGS (19)
  1. ACETAMINOPHEN. [Concomitant]
     Active Substance: ACETAMINOPHEN
     Dosage: 1 DOSE AS NEEDED
     Route: 048
  2. AZITHROMYCIN ANHYDROUS. [Concomitant]
     Active Substance: AZITHROMYCIN ANHYDROUS
     Dosage: 100MG/5ML SUSP RECON. , AS DIRECTED
     Route: 048
  3. PRIVIGEN [Suspect]
     Active Substance: HUMAN IMMUNOGLOBULIN G
     Indication: IMMUNODEFICIENCY COMMON VARIABLE
  4. SODIUM CHLORIDE 0.9% [Concomitant]
     Active Substance: SODIUM CHLORIDE
     Dosage: 1-50 ML DOSE AS DIRECTED
  5. DEXTROSE. [Concomitant]
     Active Substance: DEXTROSE
  6. VITAMIN C [Concomitant]
     Active Substance: ASCORBIC ACID
     Dosage: 1 CAPSULE DAILY
     Route: 048
  7. PRIVIGEN [Suspect]
     Active Substance: HUMAN IMMUNOGLOBULIN G
     Indication: READING DISORDER
     Dosage: 600 MG/KG
     Route: 042
  8. PRIVIGEN [Suspect]
     Active Substance: HUMAN IMMUNOGLOBULIN G
     Dosage: 20 GM VIALS
     Route: 042
  9. PROBIOTIC [Concomitant]
     Active Substance: PROBIOTICS NOS
     Dosage: 10B CELL CAPSULE, 1 CAPSULE EVERY OTHER DAY
     Route: 048
  10. ONDANSETRON HCL [Concomitant]
     Active Substance: ONDANSETRON HYDROCHLORIDE
     Dosage: 1 TABLET AS NEEDED
     Route: 048
  11. BACTROBAN NASAL 2% OINTMENT [Concomitant]
     Dosage: 1 DOSE AS DIRECTED EVERYDAY
     Route: 061
  12. MULTIVITAMIN [Concomitant]
     Active Substance: VITAMINS
     Dosage: MULTIVITAMIN 18-500-300 TABLET
     Route: 048
  13. PRIVIGEN [Suspect]
     Active Substance: HUMAN IMMUNOGLOBULIN G
     Dosage: 10 GM VIALS
     Route: 042
  14. EPIPEN AUTOINJECTOR [Concomitant]
     Indication: ANAPHYLACTIC REACTION
     Dosage: 1 DOSE AS DIRECTED
     Route: 030
  15. LIDOCAINE 4 % [Concomitant]
     Indication: PREMEDICATION
     Dosage: 1DOSE AS DIRECTED
     Route: 061
  16. VITAMIN D3 [Concomitant]
     Active Substance: CHOLECALCIFEROL
     Dosage: 1 CAPSULE EVERYDAY
     Route: 048
  17. FERROUS SULFATE. [Concomitant]
     Active Substance: FERROUS SULFATE
     Dosage: 1 TABLET EVERY OTHER DAY
     Route: 048
  18. ALEVE [Concomitant]
     Active Substance: NAPROXEN SODIUM
     Dosage: 1 TABLET AS NEEDED
     Route: 048
  19. CLARITIN [Concomitant]
     Active Substance: LORATADINE
     Route: 048

REACTIONS (4)
  - Vomiting [Unknown]
  - Fatigue [Unknown]
  - Pyrexia [Unknown]
  - Rash [Unknown]
